FAERS Safety Report 5465964-6 (Version None)
Quarter: 2007Q3

REPORT INFORMATION
  Report Type: 
  Country: None (occurrence: None)
  Receive Date: 20070924
  Receipt Date: 20070920
  Transmission Date: 20080115
  Serious: Yes (Hospitalization)
  Sender: FDA-Public Use
  Company Number: NL-GENENTECH-230626

PATIENT
  Sex: Male

DRUGS (4)
  1. BEVACIZUMAB [Suspect]
     Indication: COLORECTAL CANCER
     Dosage: 650.3 MG, Q3W
     Route: 042
     Dates: start: 20060322
  2. CAPECITABINE [Suspect]
     Indication: COLORECTAL CANCER
     Dosage: 2000 MG, QD
     Route: 048
     Dates: start: 20060322
  3. OXALIPLATIN [Suspect]
     Indication: COLORECTAL CANCER
     Dosage: 130 MG/M2, Q3W
     Route: 042
     Dates: start: 20060320, end: 20060809
  4. CETUXIMAB [Suspect]
     Indication: COLORECTAL CANCER
     Dosage: 510 MG, Q3W
     Route: 042
     Dates: start: 20060322

REACTIONS (1)
  - GENERALISED OEDEMA [None]
